FAERS Safety Report 21657004 (Version 2)
Quarter: 2022Q4

REPORT INFORMATION
  Report Type: Spontaneous
  Country: BG (occurrence: BG)
  Receive Date: 20221129
  Receipt Date: 20221201
  Transmission Date: 20230113
  Serious: Yes (Other)
  Sender: FDA-Public Use
  Company Number: BG-MYLANLABS-2022M1132202

PATIENT
  Age: 75 Year
  Sex: Male

DRUGS (7)
  1. SOTALOL HYDROCHLORIDE [Suspect]
     Active Substance: SOTALOL HYDROCHLORIDE
     Indication: Arrhythmia
     Dosage: 80 MILLIGRAM, BID
     Route: 048
     Dates: start: 20221120, end: 20221121
  2. PROPAFENONE [Suspect]
     Active Substance: PROPAFENONE
     Indication: Arrhythmia
     Dosage: 150 MILLIGRAM, TID, START 22-NOV-2022
     Route: 048
  3. NORVASC [Suspect]
     Active Substance: AMLODIPINE BESYLATE
     Indication: Hypertension
     Dosage: 2.5 MILLIGRAM, QD
     Route: 048
  4. BISOPROLOL FUMARATE [Concomitant]
     Active Substance: BISOPROLOL FUMARATE
     Indication: Heart rate increased
     Dosage: 1.25 MILLIGRAM, QD
     Route: 048
  5. SUZASTOR [Concomitant]
     Dosage: 10 MILLIGRAM, QD
     Route: 048
  6. IRBEC [Concomitant]
     Indication: Hypertension
     Dosage: 75 MILLIGRAM, BID
     Route: 048
  7. VINPOCETINE [Concomitant]
     Active Substance: VINPOCETINE
     Dosage: 10 MILLIGRAM, BID
     Route: 048

REACTIONS (6)
  - Dyspnoea paroxysmal nocturnal [Recovered/Resolved]
  - Gait disturbance [Recovered/Resolved]
  - Chest pain [Recovered/Resolved]
  - Abdominal pain [Recovered/Resolved]
  - Dyspnoea [Recovered/Resolved]
  - Off label use [Unknown]

NARRATIVE: CASE EVENT DATE: 20221121
